FAERS Safety Report 8480070-4 (Version None)
Quarter: 2012Q2

REPORT INFORMATION
  Report Type: 
  Country: None (occurrence: None)
  Receive Date: 20120629
  Receipt Date: 20120619
  Transmission Date: 20120825
  Serious: No
  Sender: FDA-Public Use
  Company Number: US-ASTRAZENECA-2011SE00131

PATIENT
  Age: 80 Year
  Sex: Female

DRUGS (3)
  1. SYMBICORT [Suspect]
     Indication: CHRONIC OBSTRUCTIVE PULMONARY DISEASE
     Route: 055
  2. SYMBICORT [Suspect]
     Dosage: TWO PUFFS TWO TIMES A DAY
     Route: 055
  3. SPIRIVA [Concomitant]

REACTIONS (2)
  - RESPIRATORY DISORDER [None]
  - INTENTIONAL DRUG MISUSE [None]
